FAERS Safety Report 15379048 (Version 1)
Quarter: 2018Q3

REPORT INFORMATION
  Report Type: Spontaneous
  Country: US (occurrence: US)
  Receive Date: 20180906
  Receipt Date: 20180906
  Transmission Date: 20181010
  Serious: Yes (Other)
  Sender: FDA-Public Use
  Company Number: None

PATIENT
  Age: 39 Year
  Sex: Female
  Weight: 55.35 kg

DRUGS (6)
  1. ALBUTEROL. [Concomitant]
     Active Substance: ALBUTEROL
  2. ZOLOFT [Concomitant]
     Active Substance: SERTRALINE HYDROCHLORIDE
  3. ADERALL XR [Concomitant]
  4. DAILY VITAMIN [Concomitant]
     Active Substance: VITAMINS
  5. CBD OIL [Concomitant]
     Active Substance: CANNABIDIOL
  6. ALKA?SELTZER PLUS MAXIMUM STRENGTH DAY AND NIGHT COLD AND FLU POWERMAX GELS [Suspect]
     Active Substance: ACETAMINOPHEN\DEXTROMETHORPHAN HYDROBROMIDE\DOXYLAMINE SUCCINATE\PHENYLEPHRINE HYDROCHLORIDE
     Indication: VIRAL UPPER RESPIRATORY TRACT INFECTION
     Dosage: ?          QUANTITY:2 CAPSULE(S);?
     Route: 048
     Dates: start: 20180905, end: 20180906

REACTIONS (11)
  - Heart rate increased [None]
  - Hypoaesthesia oral [None]
  - Pain in extremity [None]
  - Tremor [None]
  - Spinal pain [None]
  - Dizziness [None]
  - Vision blurred [None]
  - Hyperaesthesia [None]
  - Feeling abnormal [None]
  - Disturbance in attention [None]
  - Chills [None]

NARRATIVE: CASE EVENT DATE: 20180906
